FAERS Safety Report 4884191-4 (Version None)
Quarter: 2005Q4

REPORT INFORMATION
  Report Type: 
  Country: None (occurrence: None)
  Receive Date: 20051201
  Receipt Date: 20050908
  Transmission Date: 20060501
  Serious: No
  Sender: FDA-Public Use
  Company Number: 2005PV001933

PATIENT
  Age: 59 Year
  Sex: Male
  Weight: 108.8633 kg

DRUGS (11)
  1. BYETTA [Suspect]
     Indication: DIABETES MELLITUS NON-INSULIN-DEPENDENT
     Dosage: 5 MCG; BID; SC
     Route: 058
     Dates: start: 20050906
  2. NOVOLIN 70/30 [Concomitant]
  3. ZOCOR [Concomitant]
  4. COREG [Concomitant]
  5. KLOR-CON [Concomitant]
  6. LISINOPRIL [Concomitant]
  7. ISOSORBIDE [Concomitant]
  8. SPIRONOLACTONE [Concomitant]
  9. FUROSEMIDE [Concomitant]
  10. DIGITEK [Concomitant]
  11. ASPIRIN [Concomitant]

REACTIONS (4)
  - DIZZINESS [None]
  - FEELING JITTERY [None]
  - NAUSEA [None]
  - VISION BLURRED [None]
